FAERS Safety Report 24056585 (Version 1)
Quarter: 2024Q3

REPORT INFORMATION
  Report Type: Spontaneous
  Country: US (occurrence: US)
  Receive Date: 20240705
  Receipt Date: 20240705
  Transmission Date: 20241016
  Serious: Yes (Hospitalization, Other)
  Sender: BAUSCH AND LOMB
  Company Number: US-BAUSCH-BL-2024-010157

PATIENT
  Age: 35 Year
  Sex: Female
  Weight: 126.67 kg

DRUGS (10)
  1. ATIVAN [Suspect]
     Active Substance: LORAZEPAM
     Indication: Sedation
     Dosage: HIGH DOSES
     Route: 065
     Dates: start: 2023, end: 2023
  2. CAPLYTA [Suspect]
     Active Substance: LUMATEPERONE
     Indication: Bipolar disorder
     Route: 048
     Dates: start: 202305, end: 202312
  3. CAPLYTA [Suspect]
     Active Substance: LUMATEPERONE
     Route: 048
     Dates: start: 202312
  4. LITHIUM [Suspect]
     Active Substance: LITHIUM
     Indication: Mania
     Route: 065
     Dates: end: 202311
  5. LITHIUM [Suspect]
     Active Substance: LITHIUM
     Dosage: INCREASED DOSE
     Route: 065
     Dates: start: 202311
  6. LATUDA [Suspect]
     Active Substance: LURASIDONE HYDROCHLORIDE
     Indication: Mania
     Route: 065
     Dates: end: 2023
  7. LATUDA [Suspect]
     Active Substance: LURASIDONE HYDROCHLORIDE
     Dosage: DOSE GOING DOWN
     Route: 065
     Dates: start: 2023, end: 202310
  8. LATUDA [Suspect]
     Active Substance: LURASIDONE HYDROCHLORIDE
     Route: 065
     Dates: start: 202310, end: 2023
  9. GABAPENTIN [Suspect]
     Active Substance: GABAPENTIN
     Indication: Sedation
     Dosage: HIGH DOSES
     Route: 065
     Dates: start: 2023, end: 2023
  10. XANAX [Suspect]
     Active Substance: ALPRAZOLAM
     Indication: Sedation
     Dosage: HIGH DOSES
     Route: 065
     Dates: start: 2023, end: 2023

REACTIONS (8)
  - Toxicity to various agents [Recovered/Resolved]
  - Cardiac disorder [Recovered/Resolved]
  - Pleural effusion [Recovered/Resolved]
  - Cerebral disorder [Recovered/Resolved]
  - Pneumothorax [Recovered/Resolved]
  - Fluid intake reduced [Unknown]
  - Weight decreased [Not Recovered/Not Resolved]
  - Amnesia [Not Recovered/Not Resolved]

NARRATIVE: CASE EVENT DATE: 20230101
